FAERS Safety Report 19668879 (Version 1)
Quarter: 2021Q3

REPORT INFORMATION
  Report Type: Spontaneous
  Country: US (occurrence: US)
  Receive Date: 20210806
  Receipt Date: 20210806
  Transmission Date: 20211014
  Serious: No
  Sender: FDA-Public Use
  Company Number: US-SA-2021SA257749

PATIENT
  Sex: Female

DRUGS (7)
  1. SYMBICORT [Concomitant]
     Active Substance: BUDESONIDE\FORMOTEROL FUMARATE DIHYDRATE
  2. TRIAMCINOLONE [Concomitant]
     Active Substance: TRIAMCINOLONE
  3. MONTELUKAST [Concomitant]
     Active Substance: MONTELUKAST SODIUM
  4. FLUTICASONE. [Concomitant]
     Active Substance: FLUTICASONE
  5. MELOXICAM. [Concomitant]
     Active Substance: MELOXICAM
  6. XOLAIR [Concomitant]
     Active Substance: OMALIZUMAB
  7. DUPIXENT [Suspect]
     Active Substance: DUPILUMAB
     Indication: DERMATITIS ATOPIC
     Dosage: 300 MG, QOW
     Route: 058
     Dates: start: 20180717

REACTIONS (4)
  - Impaired quality of life [Unknown]
  - Ocular hyperaemia [Unknown]
  - Dry eye [Unknown]
  - Product dose omission in error [Unknown]
